FAERS Safety Report 16798654 (Version 2)
Quarter: 2019Q3

REPORT INFORMATION
  Report Type: Spontaneous
  Country: JP (occurrence: JP)
  Receive Date: 20190912
  Receipt Date: 20190913
  Transmission Date: 20191005
  Serious: Yes (Hospitalization)
  Sender: FDA-Public Use
  Company Number: JP-VIFOR (INTERNATIONAL) INC.-VIT-2019-08942

PATIENT
  Age: 69 Year
  Sex: Male

DRUGS (8)
  1. VELPHORO [Suspect]
     Active Substance: FERRIC OXYHYDROXIDE
     Route: 048
     Dates: start: 2019, end: 2019
  2. VELPHORO [Suspect]
     Active Substance: FERRIC OXYHYDROXIDE
     Indication: HYPERPHOSPHATAEMIA
     Route: 048
     Dates: start: 20190816
  3. BENIDIPINE HYDROCHLORIDE [Concomitant]
     Active Substance: BENIDIPINE HYDROCHLORIDE
     Route: 048
  4. PRECIPITATED CALCIUM CARBONATE [Concomitant]
     Active Substance: CALCIUM CARBONATE
     Route: 048
  5. AMLODIPINE [Concomitant]
     Active Substance: AMLODIPINE BESYLATE
     Route: 048
  6. VELPHORO [Suspect]
     Active Substance: FERRIC OXYHYDROXIDE
     Route: 048
     Dates: start: 2019, end: 2019
  7. TRAZENTA [Concomitant]
     Active Substance: LINAGLIPTIN
     Route: 048
  8. NIFEDIPINE. [Concomitant]
     Active Substance: NIFEDIPINE
     Route: 048

REACTIONS (3)
  - Product dispensing error [Recovered/Resolved]
  - Incorrect dose administered [Recovered/Resolved]
  - Oxygen saturation decreased [Recovering/Resolving]

NARRATIVE: CASE EVENT DATE: 2019
